FAERS Safety Report 11722521 (Version 1)
Quarter: 2015Q4

REPORT INFORMATION
  Report Type: Spontaneous
  Country: US (occurrence: US)
  Receive Date: 20151111
  Receipt Date: 20151111
  Transmission Date: 20160304
  Serious: Yes (Death)
  Sender: FDA-Public Use
  Company Number: PHHY2015US130913

PATIENT
  Age: 55 Year
  Sex: Female

DRUGS (1)
  1. MEKINIST [Suspect]
     Active Substance: TRAMETINIB DIMETHYL SULFOXIDE
     Indication: BREAST CANCER
     Dosage: 2 MG, QD
     Route: 048
     Dates: start: 20140731

REACTIONS (1)
  - Death [Fatal]

NARRATIVE: CASE EVENT DATE: 20150512
